FAERS Safety Report 16774557 (Version 12)
Quarter: 2021Q3

REPORT INFORMATION
  Report Type: Report from Study
  Country: None (occurrence: NL)
  Receive Date: 20190905
  Receipt Date: 20210820
  Transmission Date: 20211014
  Serious: Yes (Hospitalization, Other)
  Sender: FDA-Public Use
  Company Number: NL-ABBVIE-19K-114-2862164-00

PATIENT
  Sex: Male

DRUGS (9)
  1. DUODOPA [Suspect]
     Active Substance: CARBIDOPA\LEVODOPA
     Dosage: CONTINUOUS DAY DOSE 5;CONTINUOUS NIGHT DOSE 2.8
     Route: 050
  2. DUODOPA [Suspect]
     Active Substance: CARBIDOPA\LEVODOPA
     Dosage: MD: 10.0ML, CD: 5.0ML/H, ED: 3.0ML, ND: 0.0ML, CND: 2.3ML/H,END: 3.0ML;
     Route: 050
  3. MOVICOLON [Concomitant]
     Active Substance: POLYETHYLENE GLYCOL 3350\POTASSIUM CHLORIDE\SODIUM BICARBONATE\SODIUM CHLORIDE
     Indication: PRODUCT USED FOR UNKNOWN INDICATION
  4. DUODOPA [Suspect]
     Active Substance: CARBIDOPA\LEVODOPA
     Dosage: MD: 10.0 ML, CD: 5.0 ML/HR, ED: 3.0 ML, CND: 2.3 ML/HR, END: 3.0 ML
     Route: 050
  5. MACROGOL [Concomitant]
     Active Substance: POLYETHYLENE GLYCOLS
     Indication: ABNORMAL FAECES
  6. DUODOPA [Suspect]
     Active Substance: CARBIDOPA\LEVODOPA
     Route: 050
  7. DUODOPA [Suspect]
     Active Substance: CARBIDOPA\LEVODOPA
     Dosage: CD INCREASED TO 5.4 ML/H/REMAINS AT 24 HOURS
     Route: 050
  8. DUODOPA [Suspect]
     Active Substance: CARBIDOPA\LEVODOPA
     Indication: PARKINSON^S DISEASE
     Dosage: MD: 12.5, CD: 5.3, ED: 3.0, CND: 2.8, END: 3.0; 24 HOUR ADMINISTRATION
     Route: 050
     Dates: start: 20180321
  9. DUODOPA [Suspect]
     Active Substance: CARBIDOPA\LEVODOPA
     Dosage: DAYPUMP:MD:12,5 ML CD: 5,1 ML ED 3,0 ML NIGHTPUMP:CD :2,8 ML ED 3,0 ML
     Route: 050

REACTIONS (36)
  - Gait inability [Recovered/Resolved]
  - Reduced facial expression [Not Recovered/Not Resolved]
  - Tension [Not Recovered/Not Resolved]
  - Dysstasia [Not Recovered/Not Resolved]
  - Gait disturbance [Unknown]
  - Parkinson^s disease [Not Recovered/Not Resolved]
  - Diarrhoea [Recovered/Resolved]
  - Iron deficiency [Not Recovered/Not Resolved]
  - Gait disturbance [Not Recovered/Not Resolved]
  - Loss of consciousness [Recovering/Resolving]
  - Stoma site erythema [Recovered/Resolved]
  - Fibroma [Not Recovered/Not Resolved]
  - Hallucination [Recovered/Resolved]
  - On and off phenomenon [Not Recovered/Not Resolved]
  - General physical health deterioration [Recovering/Resolving]
  - Extra dose administered [Recovered/Resolved]
  - Muscle rigidity [Not Recovered/Not Resolved]
  - Stoma site discharge [Recovered/Resolved]
  - Stoma site inflammation [Recovered/Resolved]
  - Hallucination [Not Recovered/Not Resolved]
  - Stress [Not Recovered/Not Resolved]
  - Emotional distress [Not Recovered/Not Resolved]
  - Walking aid user [Not Recovered/Not Resolved]
  - Weight decreased [Recovered/Resolved]
  - Hospitalisation [Unknown]
  - Memory impairment [Not Recovered/Not Resolved]
  - Dyskinesia [Recovering/Resolving]
  - Therapeutic product effect incomplete [Recovering/Resolving]
  - Cystitis noninfective [Unknown]
  - Musculoskeletal stiffness [Not Recovered/Not Resolved]
  - Muscle spasms [Not Recovered/Not Resolved]
  - Abnormal dreams [Not Recovered/Not Resolved]
  - Unevaluable event [Unknown]
  - Stoma site reaction [Recovered/Resolved]
  - Sleep disorder [Recovered/Resolved]
  - Flatulence [Not Recovered/Not Resolved]

NARRATIVE: CASE EVENT DATE: 2021
